FAERS Safety Report 16297671 (Version 1)
Quarter: 2019Q2

REPORT INFORMATION
  Report Type: Spontaneous
  Country: US (occurrence: US)
  Receive Date: 20190510
  Receipt Date: 20190510
  Transmission Date: 20190711
  Serious: No
  Sender: FDA-Public Use
  Company Number: US-JNJFOC-20190431420

PATIENT
  Sex: Female
  Weight: 52.16 kg

DRUGS (1)
  1. TYLENOL REGULAR STRENGTH [Suspect]
     Active Substance: ACETAMINOPHEN
     Indication: ANALGESIC THERAPY
     Dosage: 1 CAPSULE A COUPLE OF TIMES A MONTH - ABOUT 35 PILLS WERE USED IN THE PAST YEAR OR SO
     Route: 048

REACTIONS (3)
  - Incorrect dose administered [Unknown]
  - Foreign body in respiratory tract [Recovered/Resolved]
  - Choking sensation [Recovered/Resolved]
